FAERS Safety Report 8910420 (Version 1)
Quarter: 2012Q4

REPORT INFORMATION
  Report Type: 
  Country: GB (occurrence: GB)
  Receive Date: 20121115
  Receipt Date: 20121115
  Transmission Date: 20130627
  Serious: Yes (Hospitalization)
  Sender: FDA-Public Use
  Company Number: GB-NOVOPROD-363459

PATIENT
  Age: 41 Year
  Sex: Female

DRUGS (7)
  1. VICTOZA [Suspect]
     Indication: PRODUCT USED FOR UNKNOWN INDICATION
     Dosage: 1.2 mg, qd
     Route: 058
     Dates: start: 20120801, end: 20121018
  2. GLICLAZIDE [Concomitant]
     Dosage: UNK
  3. LAMOTRIGINE [Concomitant]
     Dosage: UNK
  4. METFORMIN [Concomitant]
     Dosage: UNK
  5. PIOGLITAZONE [Concomitant]
     Dosage: UNK
  6. SIMVASTATIN [Concomitant]
     Dosage: UNK
  7. VENLAFAXINE [Concomitant]
     Dosage: UNK

REACTIONS (2)
  - Pancreatitis acute [Recovering/Resolving]
  - Malaise [Unknown]
